FAERS Safety Report 23399117 (Version 1)
Quarter: 2024Q1

REPORT INFORMATION
  Report Type: Spontaneous
  Country: CA (occurrence: CA)
  Receive Date: 20240113
  Receipt Date: 20240113
  Transmission Date: 20240409
  Serious: Yes (Hospitalization, Other)
  Sender: FDA-Public Use
  Company Number: CA-AMGEN-CANSP2024005146

PATIENT

DRUGS (1)
  1. ADALIMUMAB [Suspect]
     Active Substance: ADALIMUMAB\ISOPROPYL ALCOHOL
     Indication: Crohn^s disease
     Dosage: UNK
     Route: 058

REACTIONS (6)
  - Crohn^s disease [Unknown]
  - Abscess drainage [Unknown]
  - Folliculitis [Unknown]
  - Product substitution issue [Unknown]
  - Sarcoidosis of lymph node [Unknown]
  - Lymph node abscess [Unknown]
